FAERS Safety Report 7078378-2 (Version None)
Quarter: 2010Q4

REPORT INFORMATION
  Report Type: 
  Country: None (occurrence: None)
  Receive Date: 20101102
  Receipt Date: 20101025
  Transmission Date: 20110411
  Serious: Yes (Other)
  Sender: FDA-Public Use
  Company Number: US-US-EMD SERONO, INC.-7024279

PATIENT
  Sex: Female

DRUGS (7)
  1. REBIF [Suspect]
     Indication: MULTIPLE SCLEROSIS
     Route: 058
     Dates: start: 20100928, end: 20101001
  2. REBIF [Suspect]
     Route: 058
     Dates: start: 20101012, end: 20101019
  3. KLONOPIN [Concomitant]
     Indication: DEPRESSION
  4. DEPAKOTE [Concomitant]
     Indication: DEPRESSION
     Dates: start: 20100101
  5. BIRTH CONTTROL PILL [Concomitant]
  6. ZOLOFT [Concomitant]
     Indication: DEPRESSION
     Dates: end: 20100101
  7. ZOLOFT [Concomitant]
     Dates: start: 20101001

REACTIONS (2)
  - DEPRESSION [None]
  - SUICIDAL IDEATION [None]
